FAERS Safety Report 18880757 (Version 1)
Quarter: 2021Q1

REPORT INFORMATION
  Report Type: Report from Study
  Country: None (occurrence: DE)
  Receive Date: 20210212
  Receipt Date: 20210212
  Transmission Date: 20210420
  Serious: Yes (Other)
  Sender: FDA-Public Use
  Company Number: DE-ABBVIE-21K-062-3768539-00

PATIENT
  Age: 46 Year
  Sex: Female

DRUGS (1)
  1. HUMIRA [Suspect]
     Active Substance: ADALIMUMAB
     Indication: AXIAL SPONDYLOARTHRITIS
     Route: 058
     Dates: start: 20201102

REACTIONS (1)
  - Endodontic procedure [Unknown]

NARRATIVE: CASE EVENT DATE: 20210208
